FAERS Safety Report 9885948 (Version 1)
Quarter: 2014Q1

REPORT INFORMATION
  Report Type: Spontaneous
  Country: US (occurrence: None)
  Receive Date: 20140207
  Receipt Date: 20140207
  Transmission Date: 20141002
  Serious: Yes (Hospitalization)
  Sender: FDA-Public Use
  Company Number: None

PATIENT
  Age: 3 Year
  Sex: Female
  Weight: 16.5 kg

DRUGS (2)
  1. DEXAMETHASONE [Suspect]
  2. VINCRISTINE SULFATE [Suspect]

REACTIONS (5)
  - Large intestine perforation [None]
  - Peritonitis [None]
  - Rectal perforation [None]
  - General physical health deterioration [None]
  - Colitis [None]
